FAERS Safety Report 4408524-8 (Version None)
Quarter: 2004Q3

REPORT INFORMATION
  Report Type: 
  Country: None (occurrence: None)
  Receive Date: 20040726
  Receipt Date: 20040521
  Transmission Date: 20050211
  Serious: Yes (Hospitalization)
  Sender: FDA-Public Use
  Company Number: 2004UW10818

PATIENT
  Age: 35 Year
  Sex: Male

DRUGS (3)
  1. CRESTOR [Suspect]
     Dosage: 10 MG QD PO
     Route: 048
     Dates: start: 20040301, end: 20040425
  2. PLAVIX [Concomitant]
  3. ASPIRIN [Concomitant]

REACTIONS (3)
  - DIZZINESS [None]
  - NAUSEA [None]
  - RHABDOMYOLYSIS [None]
